FAERS Safety Report 8414955-1 (Version None)
Quarter: 2012Q2

REPORT INFORMATION
  Report Type: 
  Country: None (occurrence: None)
  Receive Date: 20120606
  Receipt Date: 20120523
  Transmission Date: 20120825
  Serious: Yes (Hospitalization, Other)
  Sender: FDA-Public Use
  Company Number: US-SHIRE-ALL1-2012-02671

PATIENT
  Sex: Male

DRUGS (1)
  1. VYVANSE [Suspect]
     Indication: PRODUCT USED FOR UNKNOWN INDICATION
     Dosage: UNK UNK, 1X/DAY:QD
     Route: 048
     Dates: end: 20120501

REACTIONS (3)
  - PSYCHOTIC DISORDER [None]
  - ADVERSE EVENT [None]
  - SUICIDAL BEHAVIOUR [None]
